FAERS Safety Report 7252503 (Version 7)
Quarter: 2018Q1

REPORT INFORMATION
  Report Type: Spontaneous
  Country: FR (occurrence: FR)
  Receive Date: 20100122
  Receipt Date: 20180102
  Transmission Date: 20180509
  Serious: Yes (Congenital Anomaly, Other)
  Sender: FDA-Public Use
  Company Number: FR-PFIZER INC-2010006270

PATIENT
  Sex: Female
  Weight: 4 kg

DRUGS (17)
  1. DOXIUM [Suspect]
     Active Substance: CALCIUM DOBESILATE
     Dosage: 1 DF, 3X/DAY
     Route: 064
     Dates: end: 20090401
  2. DICYNONE [Suspect]
     Active Substance: ETHAMSYLATE
     Dosage: 1 DF, 1X/DAY
     Route: 064
     Dates: end: 20090401
  3. OLMESARTAN MEDOXOMIL. [Suspect]
     Active Substance: OLMESARTAN MEDOXOMIL
     Dosage: UNK
     Route: 064
     Dates: end: 20090401
  4. DEROXAT [Suspect]
     Active Substance: PAROXETINE HYDROCHLORIDE
     Dosage: 1 DF, 2X/DAY
     Route: 064
     Dates: end: 20090401
  5. POTASSIUM IODIDE. [Concomitant]
     Active Substance: POTASSIUM IODIDE
     Dosage: UNK
  6. LYRICA [Suspect]
     Active Substance: PREGABALIN
     Dosage: 1 DF, 3X/DAY
     Route: 064
     Dates: end: 20090401
  7. GLYCEROL\PARAFFIN [Concomitant]
     Active Substance: GLYCERIN\PARAFFIN
  8. APIDRA [Concomitant]
     Active Substance: INSULIN GLULISINE
     Dosage: UNK
     Dates: end: 20090401
  9. FOLIO [Concomitant]
     Active Substance: FOLIC ACID
  10. GYNEFAM [Concomitant]
  11. LYSANXIA [Suspect]
     Active Substance: PRAZEPAM
     Dosage: 1 DF, 3X/DAY
     Route: 064
     Dates: end: 20090401
  12. ANAFRANIL [Concomitant]
     Active Substance: CLOMIPRAMINE HYDROCHLORIDE
  13. OROCAL (CALCIUM CARBONATE) [Concomitant]
     Active Substance: CALCIUM CARBONATE
     Dosage: UNK, 1X/DAY
  14. NOVORAPID [Concomitant]
     Active Substance: INSULIN ASPART
  15. TERCIAN [Suspect]
     Active Substance: CYAMEMAZINE
     Dosage: UNK
     Route: 064
  16. SEROPRAM (CITALOPRAM HYDROBROMIDE) [Suspect]
     Active Substance: CITALOPRAM HYDROBROMIDE
     Dosage: UNK
     Route: 064
     Dates: start: 20090401
  17. DAFALGAN [Concomitant]
     Active Substance: ACETAMINOPHEN

REACTIONS (4)
  - Congenital musculoskeletal anomaly [Not Recovered/Not Resolved]
  - Premature baby [Not Recovered/Not Resolved]
  - Maternal exposure during pregnancy [Not Recovered/Not Resolved]
  - Atrial septal defect [Not Recovered/Not Resolved]

NARRATIVE: CASE EVENT DATE: 200903
